FAERS Safety Report 7794999-3 (Version None)
Quarter: 2011Q4

REPORT INFORMATION
  Report Type: 
  Country: None (occurrence: None)
  Receive Date: 20111004
  Receipt Date: 20110928
  Transmission Date: 20120403
  Serious: Yes (Other)
  Sender: FDA-Public Use
  Company Number: PHHY2011CA42621

PATIENT
  Sex: Female

DRUGS (1)
  1. ZOLEDRONOC ACID [Suspect]
     Dosage: 5 MG, UNK
     Route: 042

REACTIONS (6)
  - ABDOMINAL PAIN [None]
  - FATIGUE [None]
  - METASTASES TO LUNG [None]
  - METASTASES TO BONE [None]
  - GENERAL PHYSICAL CONDITION ABNORMAL [None]
  - PANCREATIC CARCINOMA [None]
